FAERS Safety Report 11432227 (Version 1)
Quarter: 2015Q3

REPORT INFORMATION
  Report Type: Spontaneous
  Country: TR (occurrence: TR)
  Receive Date: 20150828
  Receipt Date: 20150828
  Transmission Date: 20151125
  Serious: Yes (Death, Other)
  Sender: FDA-Public Use
  Company Number: TR-BAYER-2015-405666

PATIENT
  Age: 2 Year
  Sex: Female

DRUGS (6)
  1. CLOFARABINE [Concomitant]
     Active Substance: CLOFARABINE
     Dosage: 40MG/M2/DAY FOR 5 DAYS
  2. IDARUBICIN [Suspect]
     Active Substance: IDARUBICIN
     Indication: ACUTE MYELOID LEUKAEMIA
     Dosage: 12MG/M2/DAY FOR 3 DAYS
  3. CYTARABINE. [Suspect]
     Active Substance: CYTARABINE
     Indication: ACUTE MYELOID LEUKAEMIA
     Dosage: 2G/M2/DAY FOR 4 DAYS
  4. CYTARABINE. [Suspect]
     Active Substance: CYTARABINE
     Indication: ACUTE MYELOID LEUKAEMIA
     Dosage: 1G/M2/DAY FOR 5 DAYS
  5. SORAFENIB (RAF KINASE INHIBITOR) [Suspect]
     Active Substance: SORAFENIB
     Indication: ACUTE MYELOID LEUKAEMIA
  6. FLUDARABINE [Suspect]
     Active Substance: FLUDARABINE PHOSPHATE
     Indication: ACUTE MYELOID LEUKAEMIA
     Dosage: 30MG/M2/DAY FOR 4 DAYS

REACTIONS (4)
  - Pancytopenia [None]
  - Hypertension [None]
  - Neutropenic sepsis [Fatal]
  - Abdominal pain upper [None]
